FAERS Safety Report 14359185 (Version 2)
Quarter: 2018Q1

REPORT INFORMATION
  Report Type: Report from Study
  Country: US (occurrence: US)
  Receive Date: 20180105
  Receipt Date: 20180105
  Transmission Date: 20180509
  Serious: No
  Sender: FDA-Public Use
  Company Number: US-AMGEN-USASL2016079094

PATIENT
  Age: 73 Year
  Sex: Female

DRUGS (1)
  1. REPATHA [Suspect]
     Active Substance: EVOLOCUMAB
     Indication: HYPERCHOLESTEROLAEMIA
     Dosage: UNK UNK, Q2WK
     Route: 065

REACTIONS (9)
  - Eye disorder [Unknown]
  - Dizziness [Unknown]
  - Pruritus generalised [Recovered/Resolved]
  - Oropharyngeal pain [Unknown]
  - Hypertension [Unknown]
  - Burning sensation [Recovered/Resolved]
  - Pain [Unknown]
  - Pruritus [Not Recovered/Not Resolved]
  - Head discomfort [Unknown]

NARRATIVE: CASE EVENT DATE: 20160615
